FAERS Safety Report 9527424 (Version 2)
Quarter: 2013Q3

REPORT INFORMATION
  Report Type: Spontaneous
  Country: US (occurrence: US)
  Receive Date: 20130917
  Receipt Date: 20130927
  Transmission Date: 20140515
  Serious: No
  Sender: FDA-Public Use
  Company Number: US-BIOGENIDEC-2013BI089275

PATIENT
  Age: 30 Year
  Sex: Male
  Weight: 99 kg

DRUGS (4)
  1. TYSABRI [Suspect]
     Indication: MULTIPLE SCLEROSIS
     Route: 042
     Dates: start: 20130522
  2. NEURONTIN [Concomitant]
     Indication: PAIN IN EXTREMITY
  3. CYMBALTA [Concomitant]
     Indication: PAIN IN EXTREMITY
  4. CYMBALTA [Concomitant]
     Indication: PAIN IN EXTREMITY

REACTIONS (1)
  - Multiple sclerosis relapse [Unknown]
